FAERS Safety Report 5356556-8 (Version None)
Quarter: 2007Q2

REPORT INFORMATION
  Report Type: 
  Country: None (occurrence: None)
  Receive Date: 20070531
  Receipt Date: 20061023
  Transmission Date: 20071010
  Serious: Yes (Hospitalization)
  Sender: FDA-Public Use
  Company Number: 469321

PATIENT
  Age: 25 Year
  Sex: Male

DRUGS (1)
  1. MEFLOQUINE HCL [Suspect]
     Indication: PROPHYLAXIS
     Dosage: 250 MG 1 PER 1 WEEK ORAL
     Route: 048

REACTIONS (2)
  - DRUG INEFFECTIVE [None]
  - PLASMODIUM FALCIPARUM INFECTION [None]
